FAERS Safety Report 8104878-X (Version None)
Quarter: 2012Q1

REPORT INFORMATION
  Report Type: 
  Country: None (occurrence: None)
  Receive Date: 20120201
  Receipt Date: 20120125
  Transmission Date: 20120608
  Serious: Yes (Other)
  Sender: FDA-Public Use
  Company Number: US-GLAXOSMITHKLINE-A0898809A

PATIENT
  Age: 58 Year
  Sex: Male
  Weight: 119.5 kg

DRUGS (8)
  1. VARDENAFIL HYDROCHLORIDE (LEVITRA) [Concomitant]
  2. LORATADINE [Concomitant]
  3. HYDROCHLOROTHIAZIDE [Concomitant]
  4. GLYBURIDE [Concomitant]
  5. METFORMIN HCL [Concomitant]
  6. ORLISTAT [Concomitant]
  7. AVANDIA [Suspect]
     Indication: DIABETES MELLITUS
     Dosage: 4MG TWICE PER DAY
     Route: 048
     Dates: start: 20020723, end: 20071004
  8. LISINOPRIL [Concomitant]

REACTIONS (2)
  - DIABETES MELLITUS INADEQUATE CONTROL [None]
  - CEREBROVASCULAR ACCIDENT [None]
